FAERS Safety Report 24760608 (Version 1)
Quarter: 2024Q4

REPORT INFORMATION
  Report Type: Spontaneous
  Country: RS (occurrence: RS)
  Receive Date: 20241220
  Receipt Date: 20241220
  Transmission Date: 20250115
  Serious: Yes (Death)
  Sender: MERCK
  Company Number: RS-009507513-2412SRB004768

PATIENT
  Sex: Female

DRUGS (5)
  1. RECARBRIO [Suspect]
     Active Substance: CILASTATIN\IMIPENEM ANHYDROUS\RELEBACTAM ANHYDROUS
     Dosage: 1.25 G / 6 H, INDICATION: ANTIMICROBIAL THERAPY
     Route: 042
     Dates: start: 20240306
  2. CANCIDAS [Suspect]
     Active Substance: CASPOFUNGIN ACETATE
     Dosage: 70 MG INITIALLY ON DAY ONE, INDICATION: ANTIMICROBIAL THERAPY
     Dates: start: 20240306, end: 20240306
  3. CANCIDAS [Suspect]
     Active Substance: CASPOFUNGIN ACETATE
     Dosage: 50 G/24 H, INDICATION: ANTIMICROBIAL THERAPY
     Dates: start: 20240307
  4. DIFLUCAN [Concomitant]
     Active Substance: FLUCONAZOLE
     Dosage: 400MG/24H
     Route: 042
  5. TIGECYCLINE [Concomitant]
     Active Substance: TIGECYCLINE
     Dosage: 100MG/12H
     Route: 042

REACTIONS (2)
  - Nosocomial infection [Fatal]
  - Product use in unapproved indication [Unknown]

NARRATIVE: CASE EVENT DATE: 20240101
